FAERS Safety Report 12408761 (Version 3)
Quarter: 2016Q3

REPORT INFORMATION
  Report Type: Spontaneous
  Country: JP (occurrence: JP)
  Receive Date: 20160526
  Receipt Date: 20160708
  Transmission Date: 20161109
  Serious: Yes (Other)
  Sender: FDA-Public Use
  Company Number: JP-SA-2016SA098519

PATIENT
  Age: 77 Year
  Sex: Male

DRUGS (7)
  1. OXALIPLATIN. [Suspect]
     Active Substance: OXALIPLATIN
     Indication: RECTAL CANCER
     Route: 041
     Dates: start: 201505
  2. XELODA [Concomitant]
     Active Substance: CAPECITABINE
     Dates: start: 201411, end: 201504
  3. CALCIUM LEVOFOLINATE [Suspect]
     Active Substance: LEVOLEUCOVORIN CALCIUM
     Indication: RECTAL CANCER
     Dosage: IV INFUSION
     Route: 041
     Dates: start: 201505, end: 201505
  4. 5-FU [Suspect]
     Active Substance: FLUOROURACIL
     Indication: RECTAL CANCER
     Dosage: IV BOLUS AND THEN CONTINOUS INFUSION
     Route: 040
     Dates: start: 201505
  5. ELPLAT [Suspect]
     Active Substance: OXALIPLATIN
     Indication: RECTAL CANCER
     Dosage: IV INFUSION SOLUTION
     Route: 041
     Dates: start: 201411, end: 201504
  6. 5-FU [Suspect]
     Active Substance: FLUOROURACIL
     Indication: RECTAL CANCER
     Dosage: IV BOLUS AND THEN CONTINOUS INFUSION
     Route: 040
     Dates: start: 201505
  7. AVASTIN [Concomitant]
     Active Substance: BEVACIZUMAB
     Dates: start: 201411, end: 201505

REACTIONS (4)
  - Palmar-plantar erythrodysaesthesia syndrome [Unknown]
  - Hepatic encephalopathy [Recovered/Resolved]
  - Altered state of consciousness [Unknown]
  - Hyperammonaemia [Recovering/Resolving]

NARRATIVE: CASE EVENT DATE: 201505
